FAERS Safety Report 8232129-4 (Version None)
Quarter: 2012Q1

REPORT INFORMATION
  Report Type: 
  Country: None (occurrence: None)
  Receive Date: 20120323
  Receipt Date: 20120322
  Transmission Date: 20120608
  Serious: Yes (Other)
  Sender: FDA-Public Use
  Company Number: US-PFIZER INC-2012058731

PATIENT
  Sex: Male
  Weight: 136.05 kg

DRUGS (3)
  1. SIMVASTATIN [Concomitant]
     Indication: BLOOD CHOLESTEROL INCREASED
     Dosage: UNK
  2. NOVOLOG [Concomitant]
     Indication: DIABETES MELLITUS
     Dosage: UNK
  3. CHANTIX [Suspect]
     Indication: SMOKING CESSATION THERAPY
     Dosage: 0.5 MG, 1X/DAY
     Route: 048
     Dates: start: 20120301, end: 20120304

REACTIONS (4)
  - ANXIETY [None]
  - MENTAL DISORDER [None]
  - INSOMNIA [None]
  - ABNORMAL DREAMS [None]
